FAERS Safety Report 10520340 (Version 1)
Quarter: 2014Q4

REPORT INFORMATION
  Report Type: Spontaneous
  Country: US (occurrence: US)
  Receive Date: 20141015
  Receipt Date: 20141015
  Transmission Date: 20150528
  Serious: No
  Sender: FDA-Public Use
  Company Number: US-GLAXOSMITHKLINE-US2014GSK000982

PATIENT
  Sex: Male

DRUGS (3)
  1. COREG [Suspect]
     Active Substance: CARVEDILOL
     Indication: HYPERTENSION
     Dosage: UNK, U
  2. INLYTA [Concomitant]
     Active Substance: AXITINIB
  3. COREG [Suspect]
     Active Substance: CARVEDILOL
     Dosage: 40 MG, UNK

REACTIONS (1)
  - Drug ineffective [Unknown]
